FAERS Safety Report 12960634 (Version 2)
Quarter: 2017Q1

REPORT INFORMATION
  Report Type: Spontaneous
  Country: US (occurrence: US)
  Receive Date: 20161121
  Receipt Date: 20170220
  Transmission Date: 20170428
  Serious: No
  Sender: FDA-Public Use
  Company Number: US-LUNDBECK-DKLU2022568

PATIENT
  Age: 85 Year
  Sex: Female

DRUGS (6)
  1. TRINTELLIX [Concomitant]
     Active Substance: VORTIOXETINE HYDROBROMIDE
     Indication: DEPRESSION
     Route: 065
  2. NORTHERA [Suspect]
     Active Substance: DROXIDOPA
     Indication: PARKINSON^S DISEASE
     Dosage: SCHEDULE C AND TITRATING
     Route: 048
     Dates: start: 20161029, end: 201611
  3. ABILIFY [Concomitant]
     Active Substance: ARIPIPRAZOLE
     Indication: DEPRESSION
     Route: 065
  4. ULTRACET [Suspect]
     Active Substance: ACETAMINOPHEN\TRAMADOL HYDROCHLORIDE
     Indication: ARTHRALGIA
     Route: 065
  5. NORTHERA [Suspect]
     Active Substance: DROXIDOPA
     Indication: ORTHOSTATIC HYPOTENSION
     Route: 048
     Dates: start: 201610
  6. STALEVO [Concomitant]
     Active Substance: CARBIDOPA\ENTACAPONE\LEVODOPA
     Indication: PARKINSON^S DISEASE
     Route: 065

REACTIONS (10)
  - Blood pressure systolic increased [Recovering/Resolving]
  - Joint stiffness [Unknown]
  - Arthralgia [Not Recovered/Not Resolved]
  - Dizziness [Unknown]
  - Confusional state [Not Recovered/Not Resolved]
  - Condition aggravated [Unknown]
  - Feeling abnormal [Not Recovered/Not Resolved]
  - Adverse drug reaction [Unknown]
  - Nausea [Unknown]
  - Hypotension [Recovering/Resolving]

NARRATIVE: CASE EVENT DATE: 2016
